FAERS Safety Report 6489674-1 (Version None)
Quarter: 2009Q4

REPORT INFORMATION
  Report Type: 
  Country: None (occurrence: None)
  Receive Date: 20091207
  Receipt Date: 20091120
  Transmission Date: 20100525
  Serious: Yes (Other)
  Sender: FDA-Public Use
  Company Number: 2009003201

PATIENT
  Age: 66 Year
  Sex: Male

DRUGS (4)
  1. TARCEVA [Suspect]
     Indication: NON-SMALL CELL LUNG CANCER
     Dosage: (150 MG),ORAL
     Route: 048
     Dates: start: 20090922, end: 20091006
  2. METFORMIN HCL [Concomitant]
  3. ALPRAZOLAM [Concomitant]
  4. EFFORTIL (ETILEFRINE HYDROCHLORIDE) [Concomitant]

REACTIONS (2)
  - DIARRHOEA [None]
  - LUNG DISORDER [None]
